FAERS Safety Report 24109299 (Version 1)
Quarter: 2024Q3

REPORT INFORMATION
  Report Type: Spontaneous
  Country: US (occurrence: US)
  Receive Date: 20240718
  Receipt Date: 20240718
  Transmission Date: 20241016
  Serious: Yes (Hospitalization, Other)
  Sender: APOTEX
  Company Number: US-APOTEX-2024AP008243

PATIENT
  Age: 16 Year
  Sex: Male

DRUGS (7)
  1. GUANFACINE [Suspect]
     Active Substance: GUANFACINE
     Indication: Product used for unknown indication
     Dosage: 60 MILLIGRAM
     Route: 065
  2. HYDROXYZINE [Suspect]
     Active Substance: HYDROXYZINE HYDROCHLORIDE
     Indication: Product used for unknown indication
     Dosage: 1400 MILLIGRAM
     Route: 065
  3. LAMOTRIGINE [Suspect]
     Active Substance: LAMOTRIGINE
     Indication: Product used for unknown indication
     Dosage: 2800 MILLIGRAM
     Route: 065
  4. BUPROPION [Suspect]
     Active Substance: BUPROPION
     Indication: Product used for unknown indication
     Dosage: 2800 MILLIGRAM
     Route: 065
  5. CITALOPRAM [Concomitant]
     Active Substance: CITALOPRAM\CITALOPRAM HYDROBROMIDE
     Indication: Product used for unknown indication
     Dosage: UNK
     Route: 065
  6. RANITIDINE [Concomitant]
     Active Substance: RANITIDINE
     Indication: Product used for unknown indication
     Dosage: UNK
     Route: 065
  7. LURASIDONE [Concomitant]
     Active Substance: LURASIDONE
     Indication: Product used for unknown indication
     Dosage: UNK
     Route: 065

REACTIONS (19)
  - Generalised tonic-clonic seizure [Unknown]
  - Electrocardiogram ST segment elevation [Unknown]
  - Hypoxia [Unknown]
  - Pupil fixed [Not Recovered/Not Resolved]
  - Multiple organ dysfunction syndrome [Unknown]
  - Intentional overdose [Unknown]
  - Patient uncooperative [Unknown]
  - Respiratory acidosis [Unknown]
  - Defect conduction intraventricular [Unknown]
  - Coagulopathy [Unknown]
  - Apnoea [Unknown]
  - Cardiac arrest [Unknown]
  - Mental status changes [Not Recovered/Not Resolved]
  - Post-anoxic myoclonus [Unknown]
  - Atrioventricular block first degree [Unknown]
  - Suicide attempt [Unknown]
  - Sinus tachycardia [Unknown]
  - Somnolence [Unknown]
  - Hypotension [Unknown]
